FAERS Safety Report 4478869-4 (Version None)
Quarter: 2004Q4

REPORT INFORMATION
  Report Type: 
  Country: None (occurrence: None)
  Receive Date: 20041014
  Receipt Date: 20040929
  Transmission Date: 20050328
  Serious: Yes (Hospitalization)
  Sender: FDA-Public Use
  Company Number: 239611

PATIENT
  Age: 74 Year
  Sex: Female
  Weight: 59 kg

DRUGS (10)
  1. NOVONORM(REPAGLINIDE) TABLET, 1.0MG [Suspect]
     Indication: DIABETES MELLITUS
     Dosage: 1 MG, TID, PER ORAL
     Route: 048
     Dates: start: 20040823, end: 20040909
  2. CLAMOXYL /NET/(AMOXICILLIN TRIHYDRATE) [Concomitant]
  3. LASIX [Concomitant]
  4. ALPHA D3 (ALFACALCIDOL) [Concomitant]
  5. DUPHALAC /SCH/(GALACTOSE, LACTOSE, LACTULOSE) [Concomitant]
  6. VANCOMYCIN [Concomitant]
  7. APROVEL (IRBESARTAN) [Concomitant]
  8. ALLOPURINOL [Concomitant]
  9. RENAGEL [Concomitant]
  10. CHLORAMINOPHENE ^TECHNI-PHARMA^ (CHLORAMBUCIL) [Concomitant]

REACTIONS (2)
  - PRURITUS [None]
  - RASH [None]
